FAERS Safety Report 8458792-0 (Version None)
Quarter: 2012Q2

REPORT INFORMATION
  Report Type: 
  Country: None (occurrence: None)
  Receive Date: 20120622
  Receipt Date: 20120614
  Transmission Date: 20120825
  Serious: Yes (Life-Threatening, Hospitalization)
  Sender: FDA-Public Use
  Company Number: US-BAYER-2012-005444

PATIENT
  Age: 22 Year
  Sex: Female
  Weight: 82.086 kg

DRUGS (16)
  1. YASMIN [Suspect]
     Dosage: UNK
     Dates: start: 20070301, end: 20070101
  2. PHENTERMINE [Concomitant]
     Dosage: 30 MG, QD
     Dates: start: 20070202, end: 20070501
  3. YASMIN [Suspect]
     Indication: CONTRACEPTION
     Dosage: UNK
     Dates: start: 20061101, end: 20070101
  4. ZETIA [Concomitant]
     Dosage: 30 MG, QD
     Route: 048
     Dates: start: 20070404
  5. LEVOTHYROXINE [Concomitant]
     Dosage: 0.05 MG, QD
     Dates: start: 20070420, end: 20070501
  6. LO/OVRAL [Concomitant]
  7. MACRODANTIN [Concomitant]
     Dosage: 100 MG, 1 TAB TID TIMES 5
     Route: 048
     Dates: start: 20070202
  8. HYDROCODONE BITARTRATE + ACETAMINOPHEN [Concomitant]
     Indication: WISDOM TEETH REMOVAL
     Dosage: 7.5/500 MG 1 EVERY 4-6 HOURS AS NEEDED
     Route: 048
     Dates: start: 20070207
  9. LEVOTHYROXINE [Concomitant]
     Indication: HYPOTHYROIDISM
     Dosage: 0.05 MG, QD
     Route: 048
     Dates: start: 20070404
  10. LORTAB [Concomitant]
  11. PERCOCET [Concomitant]
     Indication: TOOTHACHE
     Dosage: 5/325 MG 1 TAB, Q4HR PRN
     Route: 048
     Dates: start: 20070202
  12. PENICILLIN VK [Concomitant]
     Indication: WISDOM TEETH REMOVAL
     Dosage: 500 MG, 1 QID FOR 7 DAYS
     Route: 048
     Dates: start: 20070207
  13. ZETIA [Concomitant]
     Indication: BLOOD CHOLESTEROL INCREASED
     Dosage: 10 MG, QD
     Route: 048
     Dates: start: 20070226
  14. ZETIA [Concomitant]
     Dosage: 30 MG, QD
     Dates: start: 20070420, end: 20070501
  15. PHENTERMINE [Concomitant]
     Indication: MEDICAL DIET
     Dosage: 30 MG, QD
     Route: 048
     Dates: start: 20070420, end: 20070501
  16. OGESTREL 0.5/50-21 [Concomitant]

REACTIONS (9)
  - PAIN [None]
  - ANXIETY [None]
  - GALLBLADDER NON-FUNCTIONING [None]
  - CHOLECYSTITIS ACUTE [None]
  - INJURY [None]
  - FATIGUE [None]
  - EMOTIONAL DISTRESS [None]
  - ANHEDONIA [None]
  - GENERAL PHYSICAL HEALTH DETERIORATION [None]
